FAERS Safety Report 18737479 (Version 1)
Quarter: 2021Q1

REPORT INFORMATION
  Report Type: Spontaneous
  Country: DE (occurrence: DE)
  Receive Date: 20210113
  Receipt Date: 20210113
  Transmission Date: 20210419
  Serious: Yes (Hospitalization, Other)
  Sender: FDA-Public Use
  Company Number: DE-ANIPHARMA-2021-DE-000006

PATIENT
  Age: 74 Year
  Sex: Male

DRUGS (8)
  1. LAMIVUDINE. [Suspect]
     Active Substance: LAMIVUDINE
     Route: 065
  2. FLUTICASONE+SALMETEROL [Suspect]
     Active Substance: FLUTICASONE PROPIONATE\SALMETEROL XINAFOATE
     Dosage: 500/50 MCG TWO TIMES DAILY FOR 1 YEARS / DOSE TEXT: FLUTICASONE DOSE HAS BEEN HALVE
     Route: 065
  3. INDINAVIR [Suspect]
     Active Substance: INDINAVIR
     Route: 065
  4. RITONAVIR. [Suspect]
     Active Substance: RITONAVIR
     Route: 065
  5. ZIDOVUDINE. [Suspect]
     Active Substance: ZIDOVUDINE
     Route: 065
  6. METFORMIN [Suspect]
     Active Substance: METFORMIN HYDROCHLORIDE
     Dosage: 500 MG BID
     Route: 065
  7. CANDESARTAN CILEXETIL. [Suspect]
     Active Substance: CANDESARTAN CILEXETIL
     Indication: PRODUCT USED FOR UNKNOWN INDICATION
     Dosage: 16 MG DAILY
     Route: 048
  8. CORTICOSTEROID NOS [Suspect]
     Active Substance: CORTICOSTEROID NOS
     Route: 065

REACTIONS (11)
  - Cushing^s syndrome [Unknown]
  - Obstructive pancreatitis [Unknown]
  - Lethargy [Unknown]
  - Osteopenia [Unknown]
  - Secondary adrenocortical insufficiency [Unknown]
  - Fatigue [Unknown]
  - Disturbance in attention [Unknown]
  - Weight increased [Unknown]
  - Weight decreased [Unknown]
  - Femur fracture [Unknown]
  - Memory impairment [Unknown]
